FAERS Safety Report 5285892-9 (Version None)
Quarter: 2007Q2

REPORT INFORMATION
  Report Type: 
  Country: None (occurrence: None)
  Receive Date: 20070404
  Receipt Date: 20070327
  Transmission Date: 20071010
  Serious: Yes (Other)
  Sender: FDA-Public Use
  Company Number: JP-BAYER-200710208BYL

PATIENT
  Age: 75 Year
  Sex: Male

DRUGS (6)
  1. AVELOX [Suspect]
     Indication: UPPER RESPIRATORY TRACT INFLAMMATION
     Dosage: TOTAL DAILY DOSE: 400 MG  UNIT DOSE: 400 MG
     Route: 048
     Dates: start: 20070301, end: 20070305
  2. HOKUNALIN [Concomitant]
     Dosage: TOTAL DAILY DOSE: 2 MG  UNIT DOSE: 2 MG
     Route: 062
     Dates: start: 20070301, end: 20070306
  3. CALONAL [Concomitant]
     Dosage: TOTAL DAILY DOSE: 600 MG  UNIT DOSE: 200 MG
     Route: 048
     Dates: start: 20070301, end: 20070306
  4. TEOFURMATE [Concomitant]
     Dosage: TOTAL DAILY DOSE: 600 MG  UNIT DOSE: 200 MG
     Route: 048
     Dates: start: 20070301, end: 20070306
  5. BLOPRESS [Concomitant]
     Dosage: TOTAL DAILY DOSE: 4 MG  UNIT DOSE: 4 MG
     Route: 048
     Dates: start: 20070219
  6. NORVASC [Concomitant]
     Dosage: TOTAL DAILY DOSE: 5 MG  UNIT DOSE: 5 MG
     Route: 048
     Dates: start: 20070219

REACTIONS (4)
  - ANOREXIA [None]
  - HAEMATOCHEZIA [None]
  - LARGE INTESTINAL HAEMORRHAGE [None]
  - MALAISE [None]
